FAERS Safety Report 23946661 (Version 1)
Quarter: 2024Q2

REPORT INFORMATION
  Report Type: Spontaneous
  Country: US (occurrence: US)
  Receive Date: 20240606
  Receipt Date: 20240606
  Transmission Date: 20240715
  Serious: Yes (Other)
  Sender: FDA-Public Use
  Company Number: US-FreseniusKabi-FK202408816

PATIENT
  Age: 38 Year
  Sex: Female

DRUGS (2)
  1. SUCCINYLCHOLINE CHLORIDE [Suspect]
     Active Substance: SUCCINYLCHOLINE CHLORIDE
     Indication: Muscle relaxant therapy
  2. PROPOFOL [Suspect]
     Active Substance: PROPOFOL
     Indication: Induction of anaesthesia

REACTIONS (3)
  - Hyperkalaemia [Recovering/Resolving]
  - Electrocardiogram QRS complex prolonged [Recovering/Resolving]
  - Maternal exposure during pregnancy [Unknown]
